FAERS Safety Report 8898869 (Version 3)
Quarter: 2012Q4

REPORT INFORMATION
  Report Type: 
  Country: RO (occurrence: RO)
  Receive Date: 20121109
  Receipt Date: 20121204
  Transmission Date: 20130627
  Serious: Yes (Other)
  Sender: FDA-Public Use
  Company Number: RO-BRISTOL-MYERS SQUIBB COMPANY-17087800

PATIENT
  Age: 40 Year
  Sex: Female
  Weight: 58 kg

DRUGS (2)
  1. ENTECAVIR [Suspect]
     Indication: HEPATITIS B
     Route: 048
     Dates: start: 20120816, end: 20121002
  2. ITRACONAZOLE [Suspect]
     Indication: VULVOVAGINAL CANDIDIASIS
     Route: 048
     Dates: start: 20120817, end: 20120821

REACTIONS (2)
  - Abortion induced [Unknown]
  - Pregnancy [Recovered/Resolved]
